FAERS Safety Report 7369646-5 (Version None)
Quarter: 2011Q1

REPORT INFORMATION
  Report Type: 
  Country: None (occurrence: None)
  Receive Date: 20110323
  Receipt Date: 20110317
  Transmission Date: 20110831
  Serious: Yes (Other)
  Sender: FDA-Public Use
  Company Number: US-PFIZER INC-2011059474

PATIENT
  Sex: Female
  Weight: 53.515 kg

DRUGS (2)
  1. FLAGYL [Concomitant]
     Dosage: UNK
  2. DILANTIN [Suspect]
     Indication: EPILEPSY
     Dosage: 400 MG, DAILY
     Route: 048
     Dates: start: 19930101

REACTIONS (3)
  - LYME DISEASE [None]
  - CLOSTRIDIAL INFECTION [None]
  - HYPOTHYROIDISM [None]
